FAERS Safety Report 18235811 (Version 1)
Quarter: 2020Q3

REPORT INFORMATION
  Report Type: Spontaneous
  Country: FR (occurrence: FR)
  Receive Date: 20200905
  Receipt Date: 20200905
  Transmission Date: 20201103
  Serious: Yes (Other)
  Sender: FDA-Public Use
  Company Number: FR-TEVA-2020-FR-1822865

PATIENT
  Age: 88 Year
  Sex: Female

DRUGS (6)
  1. CANDESARTAN CILEXETIL. [Suspect]
     Active Substance: CANDESARTAN CILEXETIL
     Indication: CARDIAC DISORDER
     Dosage: 30 MG
     Route: 048
     Dates: start: 20200620, end: 20200623
  2. BISOPROLOL (FUMARATE ACIDE DE) [Suspect]
     Active Substance: BISOPROLOL FUMARATE
     Indication: CARDIAC DISORDER
     Dosage: 60 MG
     Route: 048
     Dates: start: 20200620, end: 20200623
  3. FUROSEMIDE. [Suspect]
     Active Substance: FUROSEMIDE
     Indication: CARDIAC DISORDER
     Dosage: 120 MG
     Route: 048
     Dates: start: 20200620, end: 20200623
  4. LERCANIDIPINE (CHLORHYDRATE DE) [Suspect]
     Active Substance: LERCANIDIPINE HYDROCHLORIDE
     Indication: CARDIAC DISORDER
     Dosage: 40 MG
     Route: 048
     Dates: start: 20200620, end: 20200623
  5. HYDROCHLOROTHIAZIDE. [Suspect]
     Active Substance: HYDROCHLOROTHIAZIDE
     Indication: CARDIAC DISORDER
     Dosage: 37.5 MG
     Route: 048
     Dates: start: 20200620, end: 20200623
  6. ELIQUIS [Suspect]
     Active Substance: APIXABAN
     Indication: CARDIAC DISORDER
     Dosage: 15 MG
     Route: 048
     Dates: start: 20200620, end: 20200623

REACTIONS (2)
  - Confusional state [Recovered/Resolved]
  - Wrong dose [Recovered/Resolved]

NARRATIVE: CASE EVENT DATE: 20200623
